FAERS Safety Report 15428556 (Version 1)
Quarter: 2018Q3

REPORT INFORMATION
  Report Type: Spontaneous
  Country: US (occurrence: US)
  Receive Date: 20180926
  Receipt Date: 20180926
  Transmission Date: 20181010
  Serious: No
  Sender: FDA-Public Use
  Company Number: US-B.I. PHARMACEUTICALS,INC./RIDGEFIELD-2018-BI-046619

PATIENT
  Age: 57 Year
  Sex: Female

DRUGS (1)
  1. COMBIVENT [Suspect]
     Active Substance: ALBUTEROL SULFATE\IPRATROPIUM BROMIDE
     Indication: CHRONIC OBSTRUCTIVE PULMONARY DISEASE
     Dosage: 1 INH. 4 TIMES DAILY;  STRENGTH: 20 MCG / 100 MCG;
     Route: 055
     Dates: start: 2013

REACTIONS (8)
  - Sinus congestion [Not Recovered/Not Resolved]
  - Cough [Not Recovered/Not Resolved]
  - Dyspnoea [Not Recovered/Not Resolved]
  - Cerebral congestion [Not Recovered/Not Resolved]
  - Bruxism [Not Recovered/Not Resolved]
  - Hypoacusis [Not Recovered/Not Resolved]
  - Anosmia [Not Recovered/Not Resolved]
  - Pulmonary congestion [Not Recovered/Not Resolved]

NARRATIVE: CASE EVENT DATE: 20180909
